FAERS Safety Report 7556344-8 (Version None)
Quarter: 2011Q2

REPORT INFORMATION
  Report Type: 
  Country: None (occurrence: None)
  Receive Date: 20110615
  Receipt Date: 20110615
  Transmission Date: 20111010
  Serious: Yes (Life-Threatening)
  Sender: FDA-Public Use
  Company Number: None

PATIENT
  Age: 45 Year
  Sex: Female
  Weight: 46 kg

DRUGS (2)
  1. PHENOBARBITAL TAB [Suspect]
     Indication: HEMIPARESIS
     Dosage: 100 3 PO
     Route: 048
  2. ATENOLOL [Concomitant]

REACTIONS (1)
  - STEVENS-JOHNSON SYNDROME [None]
